FAERS Safety Report 6078973-3 (Version None)
Quarter: 2009Q1

REPORT INFORMATION
  Report Type: 
  Country: None (occurrence: None)
  Receive Date: 20090216
  Receipt Date: 20090211
  Transmission Date: 20090719
  Serious: Yes (Hospitalization)
  Sender: FDA-Public Use
  Company Number: US-ASTRAZENECA-2009UW03979

PATIENT
  Age: 65 Year
  Sex: Female
  Weight: 38.6 kg

DRUGS (4)
  1. SYMBICORT [Suspect]
     Indication: ASTHMA
     Dosage: 640 MCG BID
     Route: 055
  2. COMBIVENT [Concomitant]
  3. PREDNISONE [Concomitant]
  4. OXYGEN [Concomitant]

REACTIONS (7)
  - FLATULENCE [None]
  - ILL-DEFINED DISORDER [None]
  - NASAL CONGESTION [None]
  - OEDEMA PERIPHERAL [None]
  - PARAESTHESIA ORAL [None]
  - TREMOR [None]
  - WHEEZING [None]
